FAERS Safety Report 6924492-9 (Version None)
Quarter: 2010Q3

REPORT INFORMATION
  Report Type: 
  Country: None (occurrence: None)
  Receive Date: 20100816
  Receipt Date: 20100809
  Transmission Date: 20110219
  Serious: Yes (Hospitalization)
  Sender: FDA-Public Use
  Company Number: US-BIOGENIDEC-2009BI003129

PATIENT
  Age: 51 Year
  Sex: Female

DRUGS (2)
  1. TYSABRI [Suspect]
     Indication: MULTIPLE SCLEROSIS
     Route: 042
     Dates: start: 20061206, end: 20090101
  2. TYSABRI [Suspect]
     Route: 042
     Dates: start: 20090301

REACTIONS (7)
  - ABDOMINAL PAIN [None]
  - FAECALITH [None]
  - NASOPHARYNGITIS [None]
  - RASH [None]
  - RENAL CYST [None]
  - SCAR [None]
  - SPLEEN DISORDER [None]
